FAERS Safety Report 20353482 (Version 2)
Quarter: 2022Q1

REPORT INFORMATION
  Report Type: Spontaneous
  Country: US (occurrence: US)
  Receive Date: 20220119
  Receipt Date: 20220211
  Transmission Date: 20220423
  Serious: No
  Sender: FDA-Public Use
  Company Number: US-GILEAD-2022-0565483

PATIENT
  Age: 72 Year
  Sex: Female

DRUGS (1)
  1. EPCLUSA [Suspect]
     Active Substance: SOFOSBUVIR\VELPATASVIR
     Indication: Product used for unknown indication
     Route: 065

REACTIONS (6)
  - Diarrhoea [Recovered/Resolved]
  - Ankle fracture [Unknown]
  - Fall [Unknown]
  - Abdominal discomfort [Unknown]
  - Headache [Unknown]
  - Diarrhoea [Unknown]
